FAERS Safety Report 4327664-5 (Version None)
Quarter: 2004Q1

REPORT INFORMATION
  Report Type: 
  Country: None (occurrence: None)
  Receive Date: 20040325
  Receipt Date: 20040322
  Transmission Date: 20041129
  Serious: Yes (Death, Hospitalization)
  Sender: FDA-Public Use
  Company Number: US-SHR-03-003230

PATIENT
  Age: 68 Year
  Sex: Male

DRUGS (1)
  1. BETASERON [Suspect]
     Indication: MULTIPLE SCLEROSIS
     Dosage: 8 MIU, EVERY 2D, SUBCUTANEOUS
     Route: 058
     Dates: start: 19980101

REACTIONS (5)
  - BLOOD PRESSURE DECREASED [None]
  - DECUBITUS ULCER [None]
  - DYSPHAGIA [None]
  - MYOCARDIAL INFARCTION [None]
  - URINARY TRACT INFECTION [None]
